FAERS Safety Report 7252566-4 (Version None)
Quarter: 2011Q1

REPORT INFORMATION
  Report Type: 
  Country: None (occurrence: None)
  Receive Date: 20110129
  Receipt Date: 20100113
  Transmission Date: 20110831
  Serious: No
  Sender: FDA-Public Use
  Company Number: US-ABBOTT-10P-163-0619984-00

PATIENT
  Sex: Female
  Weight: 63.106 kg

DRUGS (4)
  1. METHOTREXATE [Concomitant]
     Indication: RHEUMATOID ARTHRITIS
     Dates: start: 20091101, end: 20100101
  2. IBUPROFEN [Concomitant]
     Indication: PAIN
     Route: 048
  3. HUMIRA [Suspect]
     Indication: RHEUMATOID ARTHRITIS
     Route: 058
     Dates: start: 20080501, end: 20091224
  4. HUMIRA [Suspect]
     Indication: RHEUMATOID ARTHRITIS
     Route: 058
     Dates: start: 20100111

REACTIONS (8)
  - RHINORRHOEA [None]
  - OROPHARYNGEAL PAIN [None]
  - INJECTION SITE HAEMATOMA [None]
  - FACIAL PAIN [None]
  - PAIN [None]
  - INJECTION SITE PAIN [None]
  - INJECTION SITE HAEMORRHAGE [None]
  - COUGH [None]
